FAERS Safety Report 11944691 (Version 1)
Quarter: 2016Q1

REPORT INFORMATION
  Report Type: Spontaneous
  Country: GR (occurrence: GR)
  Receive Date: 20160125
  Receipt Date: 20160125
  Transmission Date: 20160526
  Serious: Yes (Hospitalization, Other)
  Sender: FDA-Public Use
  Company Number: GR-BAYER-2016-007196

PATIENT
  Sex: Male

DRUGS (2)
  1. OCTEGRA [Suspect]
     Active Substance: MOXIFLOXACIN
     Indication: RESPIRATORY TRACT INFECTION
     Dosage: UNK
     Dates: start: 2015, end: 2015
  2. SINTROM [Interacting]
     Active Substance: ACENOCOUMAROL
     Indication: DEVICE FAILURE
     Dosage: UNK

REACTIONS (2)
  - Gastrointestinal haemorrhage [Recovered/Resolved]
  - Drug interaction [None]

NARRATIVE: CASE EVENT DATE: 2015
